FAERS Safety Report 20683546 (Version 1)
Quarter: 2022Q2

REPORT INFORMATION
  Report Type: Spontaneous
  Country: CH (occurrence: CH)
  Receive Date: 20220407
  Receipt Date: 20220407
  Transmission Date: 20220721
  Serious: Yes (Hospitalization, Other)
  Sender: FDA-Public Use
  Company Number: CH-Inventia-000541

PATIENT
  Age: 73 Year
  Sex: Female

DRUGS (3)
  1. DULOXETINE [Interacting]
     Active Substance: DULOXETINE
     Indication: Depression
     Dosage: 60 MG PER DAY
  2. CIPROFLOXACIN [Interacting]
     Active Substance: CIPROFLOXACIN
     Indication: Antibiotic therapy
     Dosage: 2*400 MG PER DAY
  3. TIGECYCLINE [Concomitant]
     Active Substance: TIGECYCLINE
     Indication: Antibiotic therapy
     Dosage: 2*50 MG
     Route: 042

REACTIONS (2)
  - Depressed level of consciousness [Unknown]
  - Drug interaction [Unknown]
